FAERS Safety Report 9143073 (Version 4)
Quarter: 2014Q1

REPORT INFORMATION
  Report Type: Spontaneous
  Country: US (occurrence: US)
  Receive Date: 20130306
  Receipt Date: 20140114
  Transmission Date: 20141002
  Serious: No
  Sender: FDA-Public Use
  Company Number: US-PFIZER INC-2013075046

PATIENT
  Age: 34 Year
  Sex: Female
  Weight: 59 kg

DRUGS (2)
  1. DEPO-PROVERA [Suspect]
     Indication: CONTRACEPTION
     Dosage: UNK
     Route: 030
  2. DEPO-PROVERA [Suspect]
     Indication: MENSTRUAL DISORDER

REACTIONS (4)
  - Breast fibroma [Not Recovered/Not Resolved]
  - Blood glucose decreased [Unknown]
  - Inappropriate schedule of drug administration [Unknown]
  - Unintended pregnancy [Unknown]
